FAERS Safety Report 5148768-3 (Version None)
Quarter: 2006Q4

REPORT INFORMATION
  Report Type: 
  Country: None (occurrence: None)
  Receive Date: 20061107
  Receipt Date: 20061016
  Transmission Date: 20070319
  Serious: Yes (Other)
  Sender: FDA-Public Use
  Company Number: 2006SP005085

PATIENT
  Age: 13 Year
  Sex: Female

DRUGS (2)
  1. ASMANEX TWISTHALER [Suspect]
     Indication: ASTHMA
     Dosage: 0 DF; UNK; PO
     Route: 048
  2. AVAR (CON.) [Concomitant]

REACTIONS (3)
  - DYSPNOEA [None]
  - PARAESTHESIA [None]
  - SWOLLEN TONGUE [None]
